FAERS Safety Report 5474165-7 (Version None)
Quarter: 2007Q3

REPORT INFORMATION
  Report Type: 
  Country: None (occurrence: None)
  Receive Date: 20070928
  Receipt Date: 20070913
  Transmission Date: 20080115
  Serious: Yes (Death)
  Sender: FDA-Public Use
  Company Number: 8023750

PATIENT
  Sex: Male
  Weight: 0.54 kg

DRUGS (1)
  1. KEPPRA [Suspect]
     Indication: EPILEPSY
     Dosage: TRP
     Route: 064
     Dates: end: 20070420

REACTIONS (5)
  - APGAR SCORE LOW [None]
  - CEREBRAL HAEMORRHAGE [None]
  - DRUG EXPOSURE DURING PREGNANCY [None]
  - PREMATURE LABOUR [None]
  - PULMONARY HAEMORRHAGE [None]
